FAERS Safety Report 19826920 (Version 1)
Quarter: 2021Q3

REPORT INFORMATION
  Report Type: Spontaneous
  Country: US (occurrence: US)
  Receive Date: 20210913
  Receipt Date: 20210913
  Transmission Date: 20211014
  Serious: No
  Sender: FDA-Public Use
  Company Number: None

PATIENT
  Sex: Female

DRUGS (3)
  1. DOXYCYCL HYC [Concomitant]
     Active Substance: DOXYCYCLINE HYCLATE
  2. HUMIRA [Suspect]
     Active Substance: ADALIMUMAB
     Indication: HIDRADENITIS
     Dosage: OTHER DOSE:0.4ML (40MG);?
     Route: 058
     Dates: start: 20191130
  3. AMLOD/ATORVA [Concomitant]

REACTIONS (2)
  - Illness [None]
  - Intentional dose omission [None]
